FAERS Safety Report 6274755-8 (Version None)
Quarter: 2009Q3

REPORT INFORMATION
  Report Type: 
  Country: None (occurrence: None)
  Receive Date: 20090717
  Receipt Date: 20090714
  Transmission Date: 20100115
  Serious: Yes (Other)
  Sender: FDA-Public Use
  Company Number: A0796777A

PATIENT
  Age: 29 Year
  Sex: Female

DRUGS (1)
  1. SODIUM FLUORIDE + POTASSIUM NITRATE (FORMULATION UNKNOWN) (SODIUM FLUO [Suspect]
     Indication: DENTAL CLEANING
     Dates: start: 20090712, end: 20090712

REACTIONS (7)
  - DYSPNOEA [None]
  - LOSS OF CONSCIOUSNESS [None]
  - OROPHARYNGEAL BLISTERING [None]
  - SWOLLEN TONGUE [None]
  - THROAT IRRITATION [None]
  - THROAT TIGHTNESS [None]
  - TONGUE DISCOLOURATION [None]
